FAERS Safety Report 5513701-9 (Version None)
Quarter: 2007Q4

REPORT INFORMATION
  Report Type: 
  Country: None (occurrence: None)
  Receive Date: 20071113
  Receipt Date: 20071105
  Transmission Date: 20080405
  Serious: Yes (Death)
  Sender: FDA-Public Use
  Company Number: CA-NOVOPROD-269151

PATIENT
  Age: 78 Year
  Sex: Male

DRUGS (1)
  1. NIASTASE [Suspect]
     Indication: HAEMORRHAGE
     Dosage: 90 UG/KG TOTAL: 9.6 MG
     Route: 042
     Dates: start: 20070906

REACTIONS (1)
  - CEREBRAL INFARCTION [None]
